FAERS Safety Report 10712854 (Version 1)
Quarter: 2015Q1

REPORT INFORMATION
  Report Type: Spontaneous
  Country: US (occurrence: None)
  Receive Date: 20150114
  Receipt Date: 20150114
  Transmission Date: 20150721
  Serious: No
  Sender: FDA-Public Use
  Company Number: None

PATIENT
  Age: 49 Year
  Sex: Female
  Weight: 80 kg

DRUGS (3)
  1. FEXO 180 180MG CHEMISTS^ OWN PTY LTD [Suspect]
     Active Substance: FEXOFENADINE HYDROCHLORIDE
     Indication: PRURITUS
     Dates: start: 20150112, end: 20150112
  2. FEXO 180 180MG CHEMISTS^ OWN PTY LTD [Suspect]
     Active Substance: FEXOFENADINE HYDROCHLORIDE
     Indication: SKIN SWELLING
     Dates: start: 20150112, end: 20150112
  3. FEXO 180 180MG CHEMISTS^ OWN PTY LTD [Suspect]
     Active Substance: FEXOFENADINE HYDROCHLORIDE
     Indication: ARTHROPOD BITE
     Dates: start: 20150112, end: 20150112

REACTIONS (1)
  - Rash [None]

NARRATIVE: CASE EVENT DATE: 20150112
